FAERS Safety Report 12856708 (Version 1)
Quarter: 2016Q4

REPORT INFORMATION
  Report Type: Spontaneous
  Country: US (occurrence: US)
  Receive Date: 20161018
  Receipt Date: 20161018
  Transmission Date: 20170207
  Serious: Yes (Other)
  Sender: FDA-Public Use
  Company Number: US-ASTRAZENECA-2016SF07297

PATIENT
  Age: 78 Year
  Sex: Male
  Weight: 74.4 kg

DRUGS (24)
  1. AMIODARONE HCL [Concomitant]
     Active Substance: AMIODARONE HYDROCHLORIDE
     Route: 048
  2. FLONASE [Concomitant]
     Active Substance: FLUTICASONE PROPIONATE
     Dosage: 50 MEG/ACT
     Route: 048
  3. LEXAPRO [Concomitant]
     Active Substance: ESCITALOPRAM OXALATE
     Dosage: 5.0MG UNKNOWN
     Route: 048
  4. METOPROLOL SUCCINATE. [Suspect]
     Active Substance: METOPROLOL SUCCINATE
     Route: 048
  5. LEVOFLOXACIN. [Concomitant]
     Active Substance: LEVOFLOXACIN
     Route: 048
  6. LOSARTAN POTASSIUM. [Concomitant]
     Active Substance: LOSARTAN POTASSIUM
     Route: 048
  7. TRIAMCINOLONE ACETONIDE. [Concomitant]
     Active Substance: TRIAMCINOLONE ACETONIDE
     Indication: RASH PRURITIC
     Dosage: THIN LAYER TWO TIMES A DAY
     Route: 061
  8. VIDAZA [Concomitant]
     Active Substance: AZACITIDINE
  9. PRILOSEC [Suspect]
     Active Substance: OMEPRAZOLE MAGNESIUM
     Route: 048
  10. AVODART [Concomitant]
     Active Substance: DUTASTERIDE
     Route: 048
  11. HYDROCORTISONE. [Concomitant]
     Active Substance: HYDROCORTISONE
     Dosage: TWO TIMES A DAY
     Route: 061
  12. CYTARABINE. [Suspect]
     Active Substance: CYTARABINE
     Route: 065
  13. LASIX [Concomitant]
     Active Substance: FUROSEMIDE
     Route: 048
  14. ONDANSETRON HCL [Concomitant]
     Active Substance: ONDANSETRON HYDROCHLORIDE
     Indication: NAUSEA
     Route: 048
  15. PREDNISONE. [Concomitant]
     Active Substance: PREDNISONE
     Route: 048
  16. ALLOPURINOL. [Concomitant]
     Active Substance: ALLOPURINOL
     Route: 048
  17. CYCLOBENZAPRINE HCL [Concomitant]
     Active Substance: CYCLOBENZAPRINE HYDROCHLORIDE
     Route: 048
  18. TRICOR [Concomitant]
     Active Substance: FENOFIBRATE
     Route: 048
  19. PREDNISOLONE ACETATE. [Concomitant]
     Active Substance: PREDNISOLONE ACETATE
     Dosage: AS REQUIRED
  20. AMIODARONE HCL [Concomitant]
     Active Substance: AMIODARONE HYDROCHLORIDE
     Route: 048
  21. CLOTRIMAZOLE. [Concomitant]
     Active Substance: CLOTRIMAZOLE
     Route: 048
  22. LUNESTA [Concomitant]
     Active Substance: ESZOPICLONE
     Route: 048
  23. SALONPAS PAIN RELIEF [Concomitant]
     Active Substance: MENTHOL\METHYL SALICYLATE
     Dosage: 7-15 PERCENT GEL
     Route: 061
  24. VALTREX [Concomitant]
     Active Substance: VALACYCLOVIR HYDROCHLORIDE
     Dosage: 500.0MG UNKNOWN
     Route: 048

REACTIONS (27)
  - Pancytopenia [Not Recovered/Not Resolved]
  - Constipation [Unknown]
  - Insomnia [Unknown]
  - Ear discomfort [Recovered/Resolved]
  - Candida infection [Unknown]
  - Mucosal inflammation [Unknown]
  - Spondylitis [Unknown]
  - Rash pruritic [Not Recovered/Not Resolved]
  - Myelodysplastic syndrome [Unknown]
  - Oral pain [Not Recovered/Not Resolved]
  - Arthralgia [Unknown]
  - Night sweats [Unknown]
  - Osteoarthritis [Unknown]
  - Ear pain [Unknown]
  - Haemorrhoidal haemorrhage [Unknown]
  - Conjunctival haemorrhage [Unknown]
  - Musculoskeletal chest pain [Unknown]
  - Abdominal pain upper [Unknown]
  - Acute myeloid leukaemia [Unknown]
  - Cough [Recovered/Resolved]
  - Haematuria [Unknown]
  - Urinary tract infection [Unknown]
  - Ecchymosis [Unknown]
  - Weight increased [Unknown]
  - Prostatitis [Unknown]
  - Nausea [Recovered/Resolved]
  - Dizziness [Unknown]

NARRATIVE: CASE EVENT DATE: 20130909
